FAERS Safety Report 5044696-2 (Version None)
Quarter: 2006Q3

REPORT INFORMATION
  Report Type: 
  Country: None (occurrence: None)
  Receive Date: 20060706
  Receipt Date: 20060628
  Transmission Date: 20061208
  Serious: Yes (Other)
  Sender: FDA-Public Use
  Company Number: NL-BOEHRINGER INGELHEIM PHARMACEUTICALS, INC.-2006-DE-03321GD

PATIENT
  Sex: Female

DRUGS (17)
  1. TIPRANAVIR + RITONAVIR CO-ADMIN [Suspect]
     Indication: PROPHYLAXIS
  2. TIPRANAVIR + RITONAVIR CO-ADMIN [Suspect]
     Indication: HUMAN IMMUNODEFICIENCY VIRUS TRANSMISSION
  3. NEVIRAPINE [Suspect]
     Indication: HIV INFECTION
  4. ZIDOVUDINE [Suspect]
     Indication: HIV INFECTION
  5. ZIDOVUDINE [Suspect]
     Indication: PROPHYLAXIS
     Dosage: HIGH DOSE
  6. ZIDOVUDINE [Suspect]
     Indication: HUMAN IMMUNODEFICIENCY VIRUS TRANSMISSION
  7. LAMIVUDINE [Suspect]
     Indication: HIV INFECTION
  8. LAMIVUDINE [Suspect]
     Indication: PROPHYLAXIS
  9. LAMIVUDINE [Suspect]
     Indication: HUMAN IMMUNODEFICIENCY VIRUS TRANSMISSION
  10. ABACAVIR [Suspect]
     Indication: HIV INFECTION
  11. ABACAVIR [Suspect]
     Indication: PROPHYLAXIS
  12. ABACAVIR [Suspect]
     Indication: HUMAN IMMUNODEFICIENCY VIRUS TRANSMISSION
  13. TENOFOVIR [Suspect]
     Indication: PROPHYLAXIS
  14. TENOFOVIR [Suspect]
     Indication: HUMAN IMMUNODEFICIENCY VIRUS TRANSMISSION
  15. ENFUVIRTIDE [Suspect]
     Indication: PROPHYLAXIS
  16. ENFUVIRTIDE [Suspect]
     Indication: HUMAN IMMUNODEFICIENCY VIRUS TRANSMISSION
  17. DIDANOSINE [Suspect]
     Indication: HIV INFECTION

REACTIONS (6)
  - CAESAREAN SECTION [None]
  - DRUG INEFFECTIVE [None]
  - NAUSEA [None]
  - PREMATURE BABY [None]
  - PREMATURE RUPTURE OF MEMBRANES [None]
  - WEIGHT DECREASED [None]
